FAERS Safety Report 16536750 (Version 2)
Quarter: 2019Q3

REPORT INFORMATION
  Report Type: Spontaneous
  Country: US (occurrence: US)
  Receive Date: 20190706
  Receipt Date: 20190710
  Transmission Date: 20191004
  Serious: No
  Sender: FDA-Public Use
  Company Number: US-JNJFOC-20190702136

PATIENT
  Age: 79 Year
  Sex: Female
  Weight: 49.94 kg

DRUGS (1)
  1. WOMENS ROGAINE UNSCENTED [Suspect]
     Active Substance: MINOXIDIL
     Indication: ALOPECIA
     Dosage: MAYBE A LITTLE LESS THAN THE RECOMMENDED DOSE
     Route: 061

REACTIONS (2)
  - Dandruff [Recovering/Resolving]
  - Underdose [Recovering/Resolving]
